FAERS Safety Report 9980791 (Version 1)
Quarter: 2014Q1

REPORT INFORMATION
  Report Type: Spontaneous
  Country: US (occurrence: None)
  Receive Date: 20140306
  Receipt Date: 20140306
  Transmission Date: 20141002
  Serious: Yes (Death)
  Sender: FDA-Public Use
  Company Number: None

PATIENT
  Age: 62 Year
  Sex: Male

DRUGS (1)
  1. IMBRUVICA [Suspect]
     Indication: CHRONIC LYMPHOCYTIC LEUKAEMIA
     Dosage: THREE CAPSULES, ONCE DAILY, BY MOUTH
     Route: 048
     Dates: start: 20131211, end: 20140304

REACTIONS (2)
  - Disease progression [None]
  - Unevaluable event [None]
